FAERS Safety Report 21233707 (Version 1)
Quarter: 2022Q3

REPORT INFORMATION
  Report Type: Spontaneous
  Country: US (occurrence: US)
  Receive Date: 20220819
  Receipt Date: 20220819
  Transmission Date: 20221027
  Serious: Yes (Other)
  Sender: FDA-Public Use
  Company Number: US-OTSUKA-2022_040973

PATIENT
  Sex: Female

DRUGS (2)
  1. ABILIFY [Suspect]
     Active Substance: ARIPIPRAZOLE
     Indication: Product used for unknown indication
     Dosage: UNK
     Route: 048
  2. ABILIFY [Suspect]
     Active Substance: ARIPIPRAZOLE
     Indication: Product used for unknown indication
     Dosage: UNK
     Route: 065

REACTIONS (9)
  - Brain injury [Unknown]
  - Suicidal behaviour [Unknown]
  - Seizure [Unknown]
  - Formication [Unknown]
  - Sitting disability [Unknown]
  - Cardiac disorder [Unknown]
  - Dyspnoea [Unknown]
  - Increased appetite [Unknown]
  - Treatment noncompliance [Unknown]
